FAERS Safety Report 23710846 (Version 1)
Quarter: 2024Q2

REPORT INFORMATION
  Report Type: Spontaneous
  Country: US (occurrence: US)
  Receive Date: 20240405
  Receipt Date: 20240405
  Transmission Date: 20240715
  Serious: No
  Sender: FDA-Public Use
  Company Number: US-TEVA-VS-3177158

PATIENT
  Age: 44 Year
  Sex: Male

DRUGS (5)
  1. CLONAZEPAM [Suspect]
     Active Substance: CLONAZEPAM
     Indication: Autonomic nervous system imbalance
     Dosage: ONCE A DAY AT NIGHT
     Route: 065
  2. CARAFATE [Concomitant]
     Active Substance: SUCRALFATE
     Indication: Product used for unknown indication
     Dosage: 1/2 TABLET
     Route: 065
  3. SCOPOLAMINE TRANDERMAL SYSTEM [Concomitant]
     Active Substance: SCOPOLAMINE
     Indication: Product used for unknown indication
     Dosage: AT NIGHT
     Route: 065
  4. Rhinocort nasal spray [Concomitant]
     Indication: Product used for unknown indication
     Route: 065
  5. ASTEPRO [Concomitant]
     Active Substance: AZELASTINE HYDROCHLORIDE
     Indication: Product used for unknown indication
     Route: 065

REACTIONS (2)
  - Nausea [Unknown]
  - Dysgeusia [Unknown]
